FAERS Safety Report 10006104 (Version 2)
Quarter: 2014Q3

REPORT INFORMATION
  Report Type: Spontaneous
  Country: FR (occurrence: FR)
  Receive Date: 20140313
  Receipt Date: 20140813
  Transmission Date: 20150326
  Serious: Yes (Hospitalization)
  Sender: FDA-Public Use
  Company Number: FR-SA-2014SA026579

PATIENT
  Age: 62 Year
  Sex: Male

DRUGS (4)
  1. PLAVIX [Suspect]
     Active Substance: CLOPIDOGREL BISULFATE
     Indication: ISCHAEMIC STROKE
     Route: 048
  2. PREVISCAN [Interacting]
     Active Substance: FLUINDIONE
     Indication: PERIPHERAL ARTERY THROMBOSIS
     Dosage: DOSE: 0.25
     Route: 048
     Dates: start: 20140129
  3. PLAVIX [Interacting]
     Active Substance: CLOPIDOGREL BISULFATE
     Indication: MYOCARDIAL INFARCTION
     Route: 048
  4. PREVISCAN [Interacting]
     Active Substance: FLUINDIONE
     Indication: PERIPHERAL ARTERY THROMBOSIS
     Dosage: FORM: COMPRIME  SEEABLE
     Route: 048
     Dates: start: 201112, end: 20140128

REACTIONS (4)
  - Drug interaction [Unknown]
  - Epistaxis [Recovered/Resolved]
  - Anaemia [Not Recovered/Not Resolved]
  - International normalised ratio increased [Recovered/Resolved]

NARRATIVE: CASE EVENT DATE: 20140127
